FAERS Safety Report 5859396-6 (Version None)
Quarter: 2008Q3

REPORT INFORMATION
  Report Type: 
  Country: None (occurrence: None)
  Receive Date: 20080827
  Receipt Date: 20080818
  Transmission Date: 20090109
  Serious: Yes (Other)
  Sender: FDA-Public Use
  Company Number: US-AMGEN-US302792

PATIENT
  Age: 9 Year
  Sex: Male

DRUGS (6)
  1. ENBREL [Suspect]
     Indication: JUVENILE ARTHRITIS
     Route: 065
  2. INFLIXIMAB [Suspect]
     Route: 042
  3. METHOTREXATE [Concomitant]
  4. UNSPECIFIED STEROIDS [Concomitant]
     Route: 061
  5. CYCLOSPORINE [Concomitant]
     Route: 065
  6. MYCOPHENOLATE MOFETIL [Concomitant]
     Route: 065

REACTIONS (7)
  - ABDOMINAL PAIN [None]
  - CHEST PAIN [None]
  - COUGH [None]
  - HODGKIN'S DISEASE [None]
  - JUVENILE ARTHRITIS [None]
  - RED BLOOD CELL SEDIMENTATION RATE INCREASED [None]
  - UVEITIS [None]
